FAERS Safety Report 9826971 (Version 1)
Quarter: 2014Q1

REPORT INFORMATION
  Report Type: Spontaneous
  Country: US (occurrence: US)
  Receive Date: 20140117
  Receipt Date: 20140117
  Transmission Date: 20141002
  Serious: No
  Sender: FDA-Public Use
  Company Number: US-GLAXOSMITHKLINE-A1022977A

PATIENT
  Age: 73 Year
  Sex: 0

DRUGS (1)
  1. PROMACTA [Suspect]
     Indication: PURPURA
     Dosage: 50MG PER DAY
     Route: 048
     Dates: start: 20130409

REACTIONS (2)
  - Fatigue [Not Recovered/Not Resolved]
  - Blood triglycerides increased [Not Recovered/Not Resolved]
